FAERS Safety Report 18894025 (Version 1)
Quarter: 2021Q1

REPORT INFORMATION
  Report Type: Spontaneous
  Country: SE (occurrence: SE)
  Receive Date: 20210215
  Receipt Date: 20210215
  Transmission Date: 20210420
  Serious: Yes (Life-Threatening)
  Sender: FDA-Public Use
  Company Number: SE-TEVA-2021-SE-1879073

PATIENT
  Age: 39 Year
  Sex: Female

DRUGS (2)
  1. ATRA [Concomitant]
     Active Substance: TRETINOIN
     Dates: start: 20201127
  2. ARSENIC TRIOXIDE. [Suspect]
     Active Substance: ARSENIC TRIOXIDE
     Indication: ACUTE PROMYELOCYTIC LEUKAEMIA
     Route: 065
     Dates: start: 20201127

REACTIONS (2)
  - Differentiation syndrome [Unknown]
  - Myocarditis [Unknown]

NARRATIVE: CASE EVENT DATE: 202012
